FAERS Safety Report 17457386 (Version 14)
Quarter: 2023Q1

REPORT INFORMATION
  Report Type: Report from Study
  Country: IL (occurrence: IL)
  Receive Date: 20200225
  Receipt Date: 20230330
  Transmission Date: 20230418
  Serious: Yes (Death, Hospitalization, Other)
  Sender: FDA-Public Use
  Company Number: IL-ABBVIE-20K-082-3233336-00

PATIENT
  Age: 84 Year
  Sex: Male
  Weight: 69 kg

DRUGS (16)
  1. VENETOCLAX [Suspect]
     Active Substance: VENETOCLAX
     Indication: Acute myeloid leukaemia
     Dosage: 200 MG, RAMP UP?INTERRUPTION, COUNT RECOVERY (ANC, PLATELETS OR HEMOGLOBIN)
     Route: 048
     Dates: start: 20200105, end: 20200108
  2. VENETOCLAX [Suspect]
     Active Substance: VENETOCLAX
     Indication: Acute myeloid leukaemia
     Dosage: RAMP UP,  DISCONTINUATION, PROGRESSION OF DISEASE
     Route: 048
     Dates: start: 20200109, end: 20200213
  3. VENETOCLAX [Suspect]
     Active Substance: VENETOCLAX
     Indication: Acute myeloid leukaemia
     Dosage: INTERRUPTION, COUNT RECOVERY (ANC, PLATELETS OR HEMOGLOBIN)
     Route: 048
     Dates: start: 20200202, end: 20200215
  4. ALLOPURINOL [Concomitant]
     Active Substance: ALLOPURINOL
     Indication: Prophylaxis
     Dates: start: 20200105, end: 20200112
  5. CIPROFLOXACIN [Concomitant]
     Active Substance: CIPROFLOXACIN
     Indication: Prophylaxis
     Dates: start: 20200105, end: 20200124
  6. FLUCONAZOLE [Concomitant]
     Active Substance: FLUCONAZOLE
     Indication: Prophylaxis
     Dates: start: 20200105, end: 20200109
  7. ZOFRAN [Concomitant]
     Active Substance: ONDANSETRON HYDROCHLORIDE
     Indication: Prophylaxis of nausea and vomiting
     Dates: start: 20200105
  8. DUTASTERIDE\TAMSULOSIN [Concomitant]
     Active Substance: DUTASTERIDE\TAMSULOSIN
     Indication: Benign prostatic hyperplasia
     Dates: start: 2013
  9. LOSARTAN POTASSIUM [Concomitant]
     Active Substance: LOSARTAN POTASSIUM
     Indication: Hypertension
     Dates: start: 1968
  10. ATENOLOL [Concomitant]
     Active Substance: ATENOLOL
     Indication: Hypertension
     Dates: start: 1968
  11. LERCANIDIPINE HYDROCHLORIDE [Concomitant]
     Active Substance: LERCANIDIPINE HYDROCHLORIDE
     Indication: Hypertension
     Dates: start: 1968
  12. DORMICUM [Concomitant]
     Indication: Palliative care
     Dates: start: 20200220, end: 20200221
  13. DEXAMETHASONE [Concomitant]
     Active Substance: DEXAMETHASONE
     Indication: Palliative care
     Dates: start: 20200219, end: 20200219
  14. LORAZEPAM [Concomitant]
     Active Substance: LORAZEPAM
     Indication: Palliative care
     Dates: start: 20200216, end: 20200221
  15. AZACITIDINE [Suspect]
     Active Substance: AZACITIDINE
     Indication: Product used for unknown indication
     Dosage: CYCLE 1
     Route: 058
     Dates: start: 20200105, end: 20200113
  16. AZACITIDINE [Suspect]
     Active Substance: AZACITIDINE
     Indication: Product used for unknown indication
     Dosage: CYCLE 2?133 MG
     Route: 058
     Dates: start: 20200202, end: 20200209

REACTIONS (17)
  - Disease progression [Fatal]
  - Anal haemorrhage [Recovered/Resolved with Sequelae]
  - Large intestinal haemorrhage [Recovered/Resolved with Sequelae]
  - Febrile neutropenia [Recovered/Resolved]
  - Febrile neutropenia [Recovered/Resolved]
  - Bacteraemia [Recovered/Resolved]
  - Dizziness [Not Recovered/Not Resolved]
  - Non-cardiac chest pain [Recovered/Resolved]
  - Thrombocytopenia [Recovered/Resolved]
  - Nausea [Not Recovered/Not Resolved]
  - Fatigue [Not Recovered/Not Resolved]
  - Constipation [Not Recovered/Not Resolved]
  - Depression [Recovered/Resolved with Sequelae]
  - Hepatitis B [Not Recovered/Not Resolved]
  - Septic shock [Recovered/Resolved]
  - Cholecystitis [Not Recovered/Not Resolved]
  - Clostridium difficile colitis [Not Recovered/Not Resolved]

NARRATIVE: CASE EVENT DATE: 20200107
